FAERS Safety Report 5913187-6 (Version None)
Quarter: 2008Q3

REPORT INFORMATION
  Report Type: 
  Country: None (occurrence: None)
  Receive Date: 20080909
  Receipt Date: 20071004
  Transmission Date: 20090109
  Serious: Yes (Hospitalization)
  Sender: FDA-Public Use
  Company Number: 163-20785-07100257 (0)

PATIENT
  Age: 56 Year
  Sex: Male
  Weight: 79.9 kg

DRUGS (18)
  1. THALOMID [Suspect]
     Indication: GLIOBLASTOMA MULTIFORME
     Dosage: 4200MG TOTAL DOSE, ORAL : ORAL : ORAL
     Route: 048
     Dates: start: 20070327, end: 20070101
  2. THALOMID [Suspect]
     Indication: GLIOBLASTOMA MULTIFORME
     Dosage: 4200MG TOTAL DOSE, ORAL : ORAL : ORAL
     Route: 048
     Dates: start: 20070424, end: 20070516
  3. THALOMID [Suspect]
     Indication: GLIOBLASTOMA MULTIFORME
     Dosage: 4200MG TOTAL DOSE, ORAL : ORAL : ORAL
     Route: 048
     Dates: start: 20070605, end: 20070611
  4. TEMODAR [Suspect]
     Indication: GLIOBLASTOMA MULTIFORME
     Dosage: ORAL : 5000MG TOTAL DOSE, ORAL : ORAL
     Route: 048
     Dates: start: 20070327, end: 20070101
  5. TEMODAR [Suspect]
     Indication: GLIOBLASTOMA MULTIFORME
     Dosage: ORAL : 5000MG TOTAL DOSE, ORAL : ORAL
     Route: 048
     Dates: start: 20070424, end: 20070516
  6. TEMODAR [Suspect]
     Indication: GLIOBLASTOMA MULTIFORME
     Dosage: ORAL : 5000MG TOTAL DOSE, ORAL : ORAL
     Route: 048
     Dates: start: 20070605, end: 20070611
  7. ACCUTANE [Suspect]
     Indication: GLIOBLASTOMA MULTIFORME
     Dosage: ORAL : 3360MG TOTAL DOSE, ORAL : ORAL
     Route: 048
     Dates: start: 20070327, end: 20070101
  8. ACCUTANE [Suspect]
     Indication: GLIOBLASTOMA MULTIFORME
     Dosage: ORAL : 3360MG TOTAL DOSE, ORAL : ORAL
     Route: 048
     Dates: start: 20070424, end: 20070516
  9. ACCUTANE [Suspect]
     Indication: GLIOBLASTOMA MULTIFORME
     Dosage: ORAL : 3360MG TOTAL DOSE, ORAL : ORAL
     Route: 048
     Dates: start: 20070605, end: 20070611
  10. DULCOLAX [Concomitant]
  11. MILK OF MAGNESIA TAB [Concomitant]
  12. MIRALAX [Concomitant]
  13. SENNA (SENNA) [Concomitant]
  14. ZOFRAN [Concomitant]
  15. DECADRON [Concomitant]
  16. LEVETIRACETAM [Concomitant]
  17. PROTONIX [Concomitant]
  18. LOVENOX [Concomitant]

REACTIONS (6)
  - CHEST PAIN [None]
  - CONSTIPATION [None]
  - PLEURAL EFFUSION [None]
  - PLEURITIC PAIN [None]
  - PNEUMONIA [None]
  - PULMONARY EMBOLISM [None]
